FAERS Safety Report 9614966 (Version 2)
Quarter: 2013Q4

REPORT INFORMATION
  Report Type: Spontaneous
  Country: US (occurrence: US)
  Receive Date: 20131011
  Receipt Date: 20131031
  Transmission Date: 20140711
  Serious: No
  Sender: FDA-Public Use
  Company Number: US-PFIZER INC-2013290273

PATIENT
  Age: 64 Year
  Sex: Female
  Weight: 93.88 kg

DRUGS (4)
  1. SUTENT [Suspect]
     Indication: RENAL CANCER
     Dosage: 50 MG, 1X/DAY
     Route: 048
     Dates: start: 201304
  2. BABY ASPIRIN [Concomitant]
     Dosage: UNK, 1X/DAY
  3. LISINOPRIL [Concomitant]
     Indication: HYPERTENSION
     Dosage: UNK
  4. INSULIN [Concomitant]
     Indication: DIABETES MELLITUS
     Dosage: UNK
     Dates: end: 201307

REACTIONS (2)
  - Oral mucosal blistering [Unknown]
  - Stomatitis [Unknown]
